FAERS Safety Report 11798207 (Version 1)
Quarter: 2015Q4

REPORT INFORMATION
  Report Type: Spontaneous
  Country: RO (occurrence: RO)
  Receive Date: 20151203
  Receipt Date: 20151203
  Transmission Date: 20160305
  Serious: Yes (Hospitalization, Other)
  Sender: FDA-Public Use
  Company Number: RO-JNJFOC-20151125868

PATIENT

DRUGS (4)
  1. RISPERDAL CONSTA [Suspect]
     Active Substance: RISPERIDONE
     Indication: SCHIZOAFFECTIVE DISORDER
     Dosage: DOSE= 25MG, 37.7MG OR 50MG
     Route: 065
  2. VALPROIC ACID. [Concomitant]
     Active Substance: VALPROIC ACID
     Indication: EPILEPSY
     Route: 065
  3. RISPERDAL CONSTA [Suspect]
     Active Substance: RISPERIDONE
     Indication: SCHIZOPHRENIA
     Dosage: DOSE= 25MG, 37.7MG OR 50MG
     Route: 065
  4. TRIHEXYPHENIDYL [Concomitant]
     Active Substance: TRIHEXYPHENIDYL
     Indication: PARKINSONISM
     Route: 065

REACTIONS (19)
  - Psychomotor hyperactivity [Unknown]
  - Schizophrenia [Unknown]
  - Delirium [Unknown]
  - Headache [Unknown]
  - Amenorrhoea [Unknown]
  - Hyperprolactinaemia [Unknown]
  - Insomnia [Unknown]
  - Hallucination [Unknown]
  - Anxiety [Unknown]
  - Depression [Unknown]
  - Drug ineffective [Unknown]
  - Suicidal ideation [Unknown]
  - Tardive dyskinesia [Unknown]
  - Psychotic disorder [Unknown]
  - Weight increased [Unknown]
  - Sedation [Unknown]
  - Galactorrhoea [Unknown]
  - Tremor [Unknown]
  - Extrapyramidal disorder [Unknown]
